FAERS Safety Report 6548350 (Version 3)
Quarter: 2020Q3

REPORT INFORMATION
  Report Type: Spontaneous
  Country: GB (occurrence: GB)
  Receive Date: 20080125
  Receipt Date: 20200713
  Transmission Date: 20201103
  Serious: Yes (Congenital Anomaly, Other)
  Sender: FDA-Public Use
  Company Number: PHFR2008GB00546

PATIENT
  Age: 0 Year
  Sex: Female
  Weight: 2.6 kg

DRUGS (3)
  1. MALARONE [Suspect]
     Active Substance: ATOVAQUONE\PROGUANIL HYDROCHLORIDE
     Indication: MALARIA PROPHYLAXIS
     Dosage: UNK
     Route: 064
     Dates: start: 20060909, end: 20061204
  2. AMOXICILLIN. [Suspect]
     Active Substance: AMOXICILLIN
     Indication: URINARY TRACT INFECTION
     Dosage: UNK
     Route: 064
     Dates: start: 20070320, end: 20070327
  3. ANADIN PARACETAMOL [Suspect]
     Active Substance: ACETAMINOPHEN
     Indication: PAIN
     Dosage: UNK
     Route: 064
     Dates: start: 20070111, end: 20070115

REACTIONS (2)
  - Maternal exposure during pregnancy [Recovering/Resolving]
  - Ventricular septal defect [Recovering/Resolving]

NARRATIVE: CASE EVENT DATE: 20060909
